FAERS Safety Report 9400243 (Version 2)
Quarter: 2013Q3

REPORT INFORMATION
  Report Type: Spontaneous
  Country: US (occurrence: US)
  Receive Date: 20130715
  Receipt Date: 20130917
  Transmission Date: 20140515
  Serious: Yes (Death)
  Sender: FDA-Public Use
  Company Number: US-UCBSA-091165

PATIENT
  Sex: Female
  Weight: 132.4 kg

DRUGS (1)
  1. KEPPRA [Suspect]
     Indication: CONVULSION
     Dosage: DOSE STRENGTH:500 MG

REACTIONS (1)
  - Death [Fatal]
